FAERS Safety Report 18459771 (Version 4)
Quarter: 2021Q1

REPORT INFORMATION
  Report Type: Report from Study
  Country: US (occurrence: US)
  Receive Date: 20201103
  Receipt Date: 20210318
  Transmission Date: 20210419
  Serious: Yes (Hospitalization)
  Sender: FDA-Public Use
  Company Number: US-CELGENEUS-USA-20200200944

PATIENT
  Age: 1 Year
  Sex: Female
  Weight: 9.3 kg

DRUGS (16)
  1. DEXAMETHASONE. [Suspect]
     Active Substance: DEXAMETHASONE
     Indication: ACUTE LYMPHOCYTIC LEUKAEMIA
     Dosage: 2.7 MILLIGRAM
     Route: 041
     Dates: start: 20200114, end: 20200121
  2. DAUNORUBICIN [Suspect]
     Active Substance: DAUNORUBICIN
     Indication: ACUTE LYMPHOCYTIC LEUKAEMIA
     Route: 041
     Dates: start: 20200114, end: 20200121
  3. AZACITIDINE. [Suspect]
     Active Substance: AZACITIDINE
     Indication: ACUTE LYMPHOCYTIC LEUKAEMIA
     Dosage: 2.5 MILLIGRAM/KILOGRAM
     Route: 041
     Dates: start: 20190821
  4. CYTARABINE. [Suspect]
     Active Substance: CYTARABINE
     Indication: ACUTE LYMPHOCYTIC LEUKAEMIA
     Route: 065
     Dates: start: 20200114, end: 20200114
  5. PEG?L?ASPARAGINASE [Suspect]
     Active Substance: PEGASPARGASE
     Indication: ACUTE LYMPHOCYTIC LEUKAEMIA
     Route: 041
     Dates: start: 20200114, end: 20200114
  6. PEDIASURE [Concomitant]
     Active Substance: VITAMINS
     Indication: PRODUCT USED FOR UNKNOWN INDICATION
     Route: 065
     Dates: end: 202001
  7. DEXAMETHASONE. [Suspect]
     Active Substance: DEXAMETHASONE
     Dosage: 0.9 MILLIGRAM
     Route: 041
     Dates: start: 202001, end: 20200203
  8. THIOGUANINE [Suspect]
     Active Substance: THIOGUANINE
     Indication: ACUTE LYMPHOCYTIC LEUKAEMIA
     Dosage: UNKNOWN DOSE
     Route: 048
     Dates: start: 20200114, end: 202001
  9. VINCRISTINE [Suspect]
     Active Substance: VINCRISTINE
     Indication: ACUTE LYMPHOCYTIC LEUKAEMIA
     Route: 041
     Dates: start: 20200114, end: 20200121
  10. HYDROCORTISONE. [Suspect]
     Active Substance: HYDROCORTISONE
     Indication: ACUTE LYMPHOCYTIC LEUKAEMIA
     Route: 037
     Dates: start: 20200114, end: 20200114
  11. AZACITIDINE. [Suspect]
     Active Substance: AZACITIDINE
     Dosage: 23 MILLIGRAM
     Route: 041
     Dates: start: 20200109, end: 20200113
  12. THIOGUANINE [Suspect]
     Active Substance: THIOGUANINE
     Dosage: 26 MILLIGRAM
     Route: 048
     Dates: start: 20200121, end: 20200126
  13. CYTARABINE. [Suspect]
     Active Substance: CYTARABINE
     Dosage: UNKNOWN DOSE
     Route: 041
     Dates: start: 20200122, end: 20200125
  14. HYDROCORTISONE. [Suspect]
     Active Substance: HYDROCORTISONE
     Route: 037
     Dates: start: 202001, end: 20200129
  15. CYTARABINE. [Suspect]
     Active Substance: CYTARABINE
     Dosage: UNKNOWN DOSE
     Route: 058
     Dates: start: 20200115, end: 20200118
  16. ENFAMIL [Concomitant]
     Active Substance: AMINO ACIDS\CARBOHYDRATES\MINERALS\VITAMINS
     Indication: PRODUCT USED FOR UNKNOWN INDICATION
     Dosage: 40 ML/HR X 16 HOUR
     Route: 065
     Dates: start: 202001

REACTIONS (1)
  - Enterocolitis viral [Recovered/Resolved]

NARRATIVE: CASE EVENT DATE: 20200121
